FAERS Safety Report 5309989-X (Version None)
Quarter: 2007Q2

REPORT INFORMATION
  Report Type: 
  Country: None (occurrence: None)
  Receive Date: 20070427
  Receipt Date: 20070420
  Transmission Date: 20071010
  Serious: Yes (Other)
  Sender: FDA-Public Use
  Company Number: ES-ELI_LILLY_AND_COMPANY-ES200704005487

PATIENT
  Age: 70 Year
  Sex: Female

DRUGS (1)
  1. FORTEO [Suspect]
     Indication: OSTEOPOROSIS
     Dosage: 20 UG, DAILY (1/D)
     Route: 058
     Dates: start: 20051101, end: 20070201

REACTIONS (11)
  - CHEST PAIN [None]
  - DEPRESSION [None]
  - FATIGUE [None]
  - HAEMORRHOIDS [None]
  - HYPERHIDROSIS [None]
  - MALAISE [None]
  - PALPITATIONS [None]
  - RESPIRATORY DISORDER [None]
  - SCIATICA [None]
  - SWELLING FACE [None]
  - WEIGHT INCREASED [None]
